FAERS Safety Report 10258349 (Version 1)
Quarter: 2014Q2

REPORT INFORMATION
  Report Type: Spontaneous
  Country: GB (occurrence: GB)
  Receive Date: 20140625
  Receipt Date: 20140625
  Transmission Date: 20141212
  Serious: Yes (Other)
  Sender: FDA-Public Use
  Company Number: GB-UCBSA-2014002469

PATIENT
  Age: 47 Year
  Sex: Female

DRUGS (6)
  1. VIMPAT [Suspect]
     Indication: CONVULSION
     Dosage: 50MG
     Dates: start: 201002
  2. VIMPAT [Suspect]
     Dosage: INCREASING 2/52 BY 50 MG
  3. VIMPAT [Suspect]
     Dosage: 100 MG, 2X/DAY (BID)
  4. VIMPAT [Suspect]
     Dosage: 200 MG, 2X/DAY (BID)
  5. LEVETIRACETAM [Concomitant]
     Dosage: 1 G, 2X/DAY (BID)
  6. LEVETIRACETAM [Concomitant]
     Dosage: 2 G, 2X/DAY (BID)

REACTIONS (5)
  - Meningioma [Unknown]
  - Headache [Unknown]
  - Loss of consciousness [Unknown]
  - Partial seizures [Unknown]
  - Epilepsy [Unknown]
